FAERS Safety Report 6249041-2 (Version None)
Quarter: 2009Q2

REPORT INFORMATION
  Report Type: 
  Country: None (occurrence: None)
  Receive Date: 20090624
  Receipt Date: 20090624
  Transmission Date: 20091009
  Serious: Yes (Hospitalization)
  Sender: FDA-Public Use
  Company Number: None

PATIENT
  Age: 33 Year
  Sex: Male
  Weight: 96.2 kg

DRUGS (1)
  1. ANABOLIC XTREME SUPERDROL METHASTERON 10MG ANABOLIC RESOURCES -GILBERT [Suspect]
     Indication: MUSCLE BUILDING THERAPY
     Dosage: 10MG CAPSULES TID PO
     Route: 048
     Dates: start: 20060821, end: 20060911

REACTIONS (4)
  - HEPATITIS CHOLESTATIC [None]
  - LABORATORY TEST ABNORMAL [None]
  - PRODUCT LABEL ISSUE [None]
  - WEIGHT INCREASED [None]
